FAERS Safety Report 8852686 (Version 6)
Quarter: 2012Q4

REPORT INFORMATION
  Report Type: 
  Country: US (occurrence: US)
  Receive Date: 20121022
  Receipt Date: 20121226
  Transmission Date: 20130627
  Serious: No
  Sender: FDA-Public Use
  Company Number: US-VERTEX PHARMACEUTICAL INC.-2012-022903

PATIENT
  Age: 56 Year
  Sex: Female
  Weight: 82 kg

DRUGS (7)
  1. INCIVEK [Suspect]
     Indication: HEPATITIS C
     Dosage: 750 mg, tid
     Route: 048
     Dates: start: 20121010
  2. PEGASYS [Suspect]
     Indication: HEPATITIS C
     Dosage: 180 ?g,weekly
     Route: 058
     Dates: start: 20121010
  3. RIBAVIRIN [Suspect]
     Indication: HEPATITIS C
     Dosage: 400 mg, bid
     Route: 048
     Dates: start: 20121010
  4. RIBAVIRIN [Suspect]
     Dosage: 400 mg in AM + 200 mg PM
     Dates: start: 20121106
  5. RIBAVIRIN [Suspect]
     Dosage: 600 mg, bid
     Route: 048
  6. RIBAVIRIN [Suspect]
     Dosage: 200 mg, bid
  7. AMBIEN [Concomitant]
     Indication: INSOMNIA
     Dosage: 5 mg, qd
     Route: 048

REACTIONS (19)
  - Inappropriate schedule of drug administration [Recovered/Resolved]
  - Depression [Not Recovered/Not Resolved]
  - Weight increased [Not Recovered/Not Resolved]
  - Tonsillar ulcer [Not Recovered/Not Resolved]
  - Headache [Recovered/Resolved]
  - Dysphagia [Not Recovered/Not Resolved]
  - Sleep disorder [Not Recovered/Not Resolved]
  - Pyrexia [Recovered/Resolved]
  - Chills [Recovered/Resolved]
  - Oropharyngeal pain [Not Recovered/Not Resolved]
  - Pain [Recovered/Resolved]
  - Asthenia [Not Recovered/Not Resolved]
  - Fatigue [Not Recovered/Not Resolved]
  - Rash papular [Not Recovered/Not Resolved]
  - Anaemia [Not Recovered/Not Resolved]
  - Proctalgia [Recovered/Resolved]
  - Diarrhoea [Recovered/Resolved]
  - Nausea [Not Recovered/Not Resolved]
  - Anorectal discomfort [Recovered/Resolved]
